FAERS Safety Report 10600246 (Version 5)
Quarter: 2015Q1

REPORT INFORMATION
  Report Type: Spontaneous
  Country: US (occurrence: US)
  Receive Date: 20141122
  Receipt Date: 20150127
  Transmission Date: 20150720
  Serious: Yes (Hospitalization, Other)
  Sender: FDA-Public Use
  Company Number: US-DSJP-DSU-2014-120407

PATIENT

DRUGS (5)
  1. BENICAR [Suspect]
     Active Substance: OLMESARTAN MEDOXOMIL
     Indication: PRODUCT USED FOR UNKNOWN INDICATION
     Dosage: 20 MG, QD
     Route: 048
     Dates: start: 201109, end: 201201
  2. BENICAR [Suspect]
     Active Substance: OLMESARTAN MEDOXOMIL
     Dosage: 20 MG, PRN
     Route: 048
     Dates: end: 201206
  3. BENICAR HCT [Suspect]
     Active Substance: HYDROCHLOROTHIAZIDE\OLMESARTAN MEDOXOMIL
     Indication: PRODUCT USED FOR UNKNOWN INDICATION
     Dosage: UNK
     Route: 048
     Dates: start: 200705, end: 201108
  4. BENICAR [Suspect]
     Active Substance: OLMESARTAN MEDOXOMIL
     Dosage: 40 MG, QD
     Route: 048
     Dates: start: 2012
  5. BENICAR [Suspect]
     Active Substance: OLMESARTAN MEDOXOMIL
     Dosage: 40 MG, PRN
     Route: 048
     Dates: start: 201210

REACTIONS (19)
  - Gastrooesophageal reflux disease [Unknown]
  - Irritable bowel syndrome [Unknown]
  - Polyp [Unknown]
  - Gastritis [None]
  - Diverticulum [None]
  - Pancreatitis [Unknown]
  - Hypotension [Unknown]
  - Uveitis [None]
  - Depression [None]
  - Generalised oedema [Unknown]
  - Atrial fibrillation [Unknown]
  - Malabsorption [Recovering/Resolving]
  - Diarrhoea haemorrhagic [Unknown]
  - Deep vein thrombosis [Unknown]
  - Decubitus ulcer [None]
  - Gastrointestinal disorder [Unknown]
  - Duodenitis [None]
  - Pulmonary embolism [Unknown]
  - Drug administration error [Recovered/Resolved]

NARRATIVE: CASE EVENT DATE: 2011
